FAERS Safety Report 4771173-6 (Version None)
Quarter: 2005Q3

REPORT INFORMATION
  Report Type: 
  Country: None (occurrence: None)
  Receive Date: 20050914
  Receipt Date: 20050830
  Transmission Date: 20060218
  Serious: Yes (Death, Other)
  Sender: FDA-Public Use
  Company Number: US_0508121381

PATIENT
  Age: 31 Year
  Sex: Female

DRUGS (2)
  1. GEMZAR [Suspect]
     Indication: HODGKIN'S DISEASE MIXED CELLULARITY STAGE UNSPECIFIED
     Dosage: 1000 MG/M2
     Dates: start: 20030501
  2. DEXAMETHASONE [Concomitant]

REACTIONS (16)
  - CARDIAC TAMPONADE [None]
  - DISEASE PROGRESSION [None]
  - DYSPNOEA EXERTIONAL [None]
  - HEART SOUNDS ABNORMAL [None]
  - HODGKIN'S DISEASE MIXED CELLULARITY STAGE UNSPECIFIED [None]
  - HYPOTENSION [None]
  - LEUKAEMIA [None]
  - LYMPHOMA [None]
  - PALPITATIONS [None]
  - PERICARDIAL DISEASE [None]
  - PERICARDIAL EFFUSION [None]
  - PULMONARY ARTERIAL PRESSURE ABNORMAL [None]
  - RECALL PHENOMENON [None]
  - TACHYCARDIA [None]
  - VASODILATATION [None]
  - VENTRICULAR DYSFUNCTION [None]
